FAERS Safety Report 6615949-9 (Version None)
Quarter: 2010Q1

REPORT INFORMATION
  Report Type: 
  Country: None (occurrence: None)
  Receive Date: 20100305
  Receipt Date: 20100225
  Transmission Date: 20100710
  Serious: Yes (Other)
  Sender: FDA-Public Use
  Company Number: A0846691A

PATIENT
  Age: 79 Year
  Sex: Female

DRUGS (2)
  1. AVANDIA [Suspect]
     Dosage: 4MG TWICE PER DAY
     Route: 048
     Dates: start: 20091101
  2. OTHER MEDICATIONS [Concomitant]

REACTIONS (6)
  - ABDOMINAL PAIN UPPER [None]
  - ARTHRALGIA [None]
  - NAUSEA [None]
  - PAIN [None]
  - PAIN IN EXTREMITY [None]
  - VISUAL IMPAIRMENT [None]
